FAERS Safety Report 9341272 (Version 1)
Quarter: 2013Q2

REPORT INFORMATION
  Report Type: Report from Study
  Country: AU (occurrence: AU)
  Receive Date: 20130611
  Receipt Date: 20130611
  Transmission Date: 20140414
  Serious: Yes (Other)
  Sender: FDA-Public Use
  Company Number: AU-ROCHE-GNE323343

PATIENT
  Age: 79 Year
  Sex: Female

DRUGS (1)
  1. LUCENTIS [Suspect]
     Indication: AGE-RELATED MACULAR DEGENERATION
     Route: 050
     Dates: start: 201010

REACTIONS (6)
  - Heart rate irregular [Unknown]
  - Musculoskeletal pain [Unknown]
  - Vision blurred [Recovered/Resolved]
  - Influenza [Unknown]
  - Panic reaction [Unknown]
  - Visual impairment [Unknown]
